FAERS Safety Report 21451775 (Version 1)
Quarter: 2022Q4

REPORT INFORMATION
  Report Type: Spontaneous
  Country: FR (occurrence: FR)
  Receive Date: 20221013
  Receipt Date: 20221013
  Transmission Date: 20230113
  Serious: Yes (Hospitalization)
  Sender: FDA-Public Use
  Company Number: None

PATIENT
  Age: 58 Year
  Sex: Female
  Weight: 51 kg

DRUGS (2)
  1. CEFTRIAXONE [Suspect]
     Active Substance: CEFTRIAXONE
     Indication: Endocarditis
     Dosage: 2 G/12H, CEFTRIAXONE BASE, UNIT DOSE: 2 GRAM, FREQUENCY TIME : 12 HOURS, DURATION : 22 DAYS
     Dates: start: 20220816, end: 20220907
  2. AMOXICILLIN [Suspect]
     Active Substance: AMOXICILLIN
     Indication: Endocarditis
     Dosage: 8 GRAM DAILY; 8 G/D, UNIT DOSE : 8 GRAM, FREQUENCY : OD, THERAPY END DATE : NASK
     Dates: start: 20220816

REACTIONS (2)
  - Acute kidney injury [Recovering/Resolving]
  - Agranulocytosis [Recovering/Resolving]

NARRATIVE: CASE EVENT DATE: 20220824
